FAERS Safety Report 14053194 (Version 1)
Quarter: 2017Q4

REPORT INFORMATION
  Report Type: Spontaneous
  Country: US (occurrence: None)
  Receive Date: 20171005
  Receipt Date: 20171005
  Transmission Date: 20180321
  Serious: Yes (Hospitalization)
  Sender: FDA-Public Use
  Company Number: None

PATIENT
  Age: 64 Year
  Sex: Female
  Weight: 69 kg

DRUGS (2)
  1. PEMBROLIZUMAB. [Suspect]
     Active Substance: PEMBROLIZUMAB
     Indication: ACUTE MYELOID LEUKAEMIA
     Route: 041
     Dates: start: 20170922
  2. AZACITIDINE. [Suspect]
     Active Substance: AZACITIDINE
     Indication: ACUTE MYELOID LEUKAEMIA
     Route: 041
     Dates: start: 20170929

REACTIONS (12)
  - Hypotension [None]
  - Enterovirus infection [None]
  - Atrioventricular block first degree [None]
  - Rhinovirus infection [None]
  - Lung infection [None]
  - Febrile neutropenia [None]
  - Pneumatosis [None]
  - Bacteriuria [None]
  - Tachycardia [None]
  - Bradycardia [None]
  - Gastritis [None]
  - Bacteraemia [None]

NARRATIVE: CASE EVENT DATE: 20170929
